FAERS Safety Report 10073847 (Version 1)
Quarter: 2014Q2

REPORT INFORMATION
  Report Type: Spontaneous
  Country: US (occurrence: US)
  Receive Date: 20140412
  Receipt Date: 20140412
  Transmission Date: 20141212
  Serious: No
  Sender: FDA-Public Use
  Company Number: US-009507513-1404USA002872

PATIENT
  Age: 36 Year
  Sex: Female

DRUGS (8)
  1. AMITRIPTYLINE HYDROCHLORIDE [Suspect]
     Indication: EYE DISORDER
     Dosage: 50 MG, UNK
     Route: 048
  2. AMITRIPTYLINE HYDROCHLORIDE [Suspect]
     Indication: TOLOSA-HUNT SYNDROME
  3. METHYLPREDNISOLONE SODIUM SUCCINATE [Suspect]
     Dosage: 500 MG, UNK
     Route: 042
  4. GABAPENTIN [Concomitant]
     Dosage: 1800 MG
  5. DILAUDID [Concomitant]
     Dosage: UNK, PRN
  6. METHOTREXATE [Concomitant]
  7. AZATHIOPRINE [Concomitant]
  8. INFLIXIMAB [Concomitant]
     Dosage: UNK

REACTIONS (1)
  - Drug ineffective [Unknown]
